FAERS Safety Report 8427365-8 (Version None)
Quarter: 2012Q2

REPORT INFORMATION
  Report Type: 
  Country: None (occurrence: None)
  Receive Date: 20120323
  Receipt Date: 20110302
  Transmission Date: 20120825
  Serious: Yes (Other)
  Sender: FDA-Public Use
  Company Number: 163-21880-11021789

PATIENT
  Age: 85 Year
  Sex: Female
  Weight: 57.2 kg

DRUGS (8)
  1. ATENOLOL [Concomitant]
  2. ZEMPLAR [Concomitant]
  3. LENALIDOMIDE [Suspect]
     Indication: MULTIPLE MYELOMA
     Dosage: 5 MG, PO
     Route: 048
     Dates: start: 20110130
  4. CELEBREX [Concomitant]
  5. DOXAZOSIN MESYLATE [Concomitant]
  6. PROCRIT [Concomitant]
  7. ASPIRIN [Concomitant]
  8. LASIX [Concomitant]

REACTIONS (1)
  - HAEMOGLOBIN DECREASED [None]
